FAERS Safety Report 10075626 (Version 3)
Quarter: 2014Q2

REPORT INFORMATION
  Report Type: Spontaneous
  Country: JP (occurrence: JP)
  Receive Date: 20140414
  Receipt Date: 20140530
  Transmission Date: 20141212
  Serious: Yes (Death, Hospitalization, Other)
  Sender: FDA-Public Use
  Company Number: JP-JNJFOC-20140406818

PATIENT
  Age: 80 Year
  Sex: Male
  Weight: 64 kg

DRUGS (23)
  1. XARELTO [Suspect]
     Indication: CEREBROVASCULAR ACCIDENT PROPHYLAXIS
     Route: 048
     Dates: start: 20130712, end: 20140306
  2. XARELTO [Suspect]
     Indication: ATRIAL FIBRILLATION
     Route: 048
     Dates: start: 20130712, end: 20140306
  3. APIXABAN [Interacting]
     Indication: PRODUCT USED FOR UNKNOWN INDICATION
     Route: 048
     Dates: start: 20140306, end: 20140311
  4. RENIVACE [Suspect]
     Indication: PRODUCT USED FOR UNKNOWN INDICATION
     Route: 048
     Dates: start: 20140306, end: 20140311
  5. PIMOBENDAN [Concomitant]
     Indication: PRODUCT USED FOR UNKNOWN INDICATION
     Route: 048
     Dates: start: 20140306, end: 20140311
  6. ALDACTONE A [Concomitant]
     Route: 048
     Dates: start: 20140306, end: 20140311
  7. MEXITIL [Concomitant]
     Route: 048
     Dates: start: 20130712, end: 20140306
  8. MEXITIL [Concomitant]
     Route: 048
     Dates: start: 20140306, end: 20140311
  9. DIGOXIN [Concomitant]
     Route: 048
     Dates: start: 20140306, end: 20140311
  10. HARNAL [Concomitant]
     Route: 048
     Dates: start: 20140306, end: 20140311
  11. KALGUT [Concomitant]
     Route: 048
     Dates: start: 20130712, end: 20140306
  12. URIEF [Concomitant]
     Route: 048
     Dates: start: 20130712, end: 20140306
  13. REZALTAS [Concomitant]
     Route: 048
     Dates: start: 20130712, end: 20140306
  14. CARNACULIN [Concomitant]
     Route: 048
     Dates: start: 20130712, end: 20140306
  15. LOCHOL [Concomitant]
     Route: 048
     Dates: start: 20130712, end: 20140306
  16. FLUITRAN [Concomitant]
     Route: 048
     Dates: start: 20130712, end: 20140306
  17. SIGMART [Concomitant]
     Route: 048
     Dates: start: 20130712, end: 20140306
  18. NEXIUM [Concomitant]
     Route: 048
     Dates: start: 20130712, end: 20140306
  19. MUCODYNE [Concomitant]
     Route: 048
     Dates: start: 20130712, end: 20140306
  20. MAGMITT [Concomitant]
     Route: 048
     Dates: start: 20130712, end: 20140306
  21. DAIKENTYUTO [Concomitant]
     Route: 048
     Dates: start: 20130712, end: 20140306
  22. LAC B [Concomitant]
     Route: 048
     Dates: start: 20130712, end: 20140306
  23. FRANDOL [Concomitant]
     Route: 048
     Dates: start: 20130712, end: 20140306

REACTIONS (3)
  - Pneumonia [Fatal]
  - Pulmonary alveolar haemorrhage [Fatal]
  - Drug interaction [Unknown]
